FAERS Safety Report 18212946 (Version 1)
Quarter: 2020Q3

REPORT INFORMATION
  Report Type: Spontaneous
  Country: US (occurrence: US)
  Receive Date: 20200828
  Receipt Date: 20200828
  Transmission Date: 20201103
  Serious: No
  Sender: FDA-Public Use
  Company Number: None

PATIENT
  Sex: Female

DRUGS (1)
  1. GRANIX [Suspect]
     Active Substance: TBO-FILGRASTIM
     Indication: ENDOMETRIAL CANCER
     Dosage: ?          OTHER STRENGTH:480MCG/.8;?
     Route: 058
     Dates: start: 202008

REACTIONS (3)
  - Pain [None]
  - White blood cell count decreased [None]
  - Therapy non-responder [None]
